FAERS Safety Report 25726081 (Version 1)
Quarter: 2025Q3

REPORT INFORMATION
  Report Type: Spontaneous
  Country: IN (occurrence: IN)
  Receive Date: 20250826
  Receipt Date: 20250826
  Transmission Date: 20251020
  Serious: Yes (Life-Threatening, Hospitalization)
  Sender: ACCORD
  Company Number: IN-MLMSERVICE-20250807-PI607115-00123-1

PATIENT
  Age: 40 Year
  Sex: Male

DRUGS (2)
  1. DOCETAXEL [Suspect]
     Active Substance: DOCETAXEL
     Indication: Prostate cancer stage III
  2. ALLOPURINOL [Concomitant]
     Active Substance: ALLOPURINOL

REACTIONS (3)
  - Tumour lysis syndrome [Recovering/Resolving]
  - Hyperkalaemia [Recovering/Resolving]
  - Hyperphosphataemia [Recovering/Resolving]
